FAERS Safety Report 5491464-3 (Version None)
Quarter: 2007Q4

REPORT INFORMATION
  Report Type: 
  Country: None (occurrence: None)
  Receive Date: 20071018
  Receipt Date: 20071004
  Transmission Date: 20080405
  Serious: Yes (Hospitalization, Other)
  Sender: FDA-Public Use
  Company Number: 2007VX002226

PATIENT
  Age: 48 Year
  Sex: Female
  Weight: 91.173 kg

DRUGS (5)
  1. INTERFERON ALFACON-1 [Suspect]
     Indication: HEPATITIS C
     Dosage: SC; UG;QD;SC
     Route: 058
     Dates: start: 20070731, end: 20070829
  2. RIBAVIRIN [Suspect]
     Indication: HEPATITIS C
     Dosage: 600 MG;BID;PO
     Route: 048
     Dates: start: 20070731, end: 20070829
  3. TRAZODONE HCL [Concomitant]
  4. BUSPIRONE HCL [Concomitant]
  5. EFFEXOR [Concomitant]

REACTIONS (1)
  - SUBARACHNOID HAEMORRHAGE [None]
